FAERS Safety Report 23940634 (Version 1)
Quarter: 2024Q2

REPORT INFORMATION
  Report Type: Spontaneous
  Country: US (occurrence: US)
  Receive Date: 20240605
  Receipt Date: 20240605
  Transmission Date: 20240715
  Serious: No
  Sender: FDA-Public Use
  Company Number: US-ALKEM LABORATORIES LIMITED-US-ALKEM-2024-05326

PATIENT
  Age: 28 Year
  Weight: 62 kg

DRUGS (1)
  1. VANCOMYCIN [Suspect]
     Active Substance: VANCOMYCIN
     Indication: Product used for unknown indication
     Dosage: 900 MILLIGRAM (LOADING DOSE)
     Route: 033

REACTIONS (2)
  - Drug level increased [Unknown]
  - Hypersensitivity [Unknown]
